FAERS Safety Report 7209795-5 (Version None)
Quarter: 2011Q1

REPORT INFORMATION
  Report Type: 
  Country: None (occurrence: None)
  Receive Date: 20110104
  Receipt Date: 20101202
  Transmission Date: 20110831
  Serious: No
  Sender: FDA-Public Use
  Company Number: NL-AMGEN-NLDSP2010006305

PATIENT

DRUGS (5)
  1. PERSANTIN [Concomitant]
  2. HYDROCHLOROTHIAZIDE [Concomitant]
  3. ENBREL [Suspect]
     Indication: PRODUCT USED FOR UNKNOWN INDICATION
     Dosage: UNK
     Dates: start: 20100801
  4. ASCAL [Concomitant]
  5. METOPROLOL SUCCINATE [Concomitant]

REACTIONS (2)
  - ANGIOPATHY [None]
  - VASCULAR RUPTURE [None]
